FAERS Safety Report 5773266-3 (Version None)
Quarter: 2008Q2

REPORT INFORMATION
  Report Type: 
  Country: None (occurrence: None)
  Receive Date: 20080601
  Receipt Date: 20080222
  Transmission Date: 20081010
  Serious: No
  Sender: FDA-Public Use
  Company Number: US200802005593

PATIENT
  Age: 62 Year
  Sex: Female
  Weight: 123.4 kg

DRUGS (10)
  1. BYETTA [Suspect]
     Indication: INSULIN-REQUIRING TYPE 2 DIABETES MELLITUS
     Dosage: 5 UG, 2/D, SUBCUTANEOUS; 10 UG, 2/D, SUBCUTANEOUS
     Route: 058
     Dates: start: 20071201, end: 20080101
  2. BYETTA [Suspect]
     Indication: INSULIN-REQUIRING TYPE 2 DIABETES MELLITUS
     Dosage: 5 UG, 2/D, SUBCUTANEOUS; 10 UG, 2/D, SUBCUTANEOUS
     Route: 058
     Dates: start: 20080101
  3. LANTUS [Concomitant]
  4. ZOLOFT [Concomitant]
  5. LODINE [Concomitant]
  6. ADVAIR DISKUS 100/50 [Concomitant]
  7. DETROL [Concomitant]
  8. NASONEX [Concomitant]
  9. LASIX /USA/ (FUROSEMIDE) [Concomitant]
  10. POTASSIUM (POTASSIUM) [Concomitant]

REACTIONS (4)
  - AGEUSIA [None]
  - BLOOD GLUCOSE DECREASED [None]
  - BLOOD GLUCOSE INCREASED [None]
  - DECREASED APPETITE [None]
